FAERS Safety Report 20469363 (Version 1)
Quarter: 2022Q1

REPORT INFORMATION
  Report Type: Spontaneous
  Country: NL (occurrence: NL)
  Receive Date: 20220214
  Receipt Date: 20220214
  Transmission Date: 20220423
  Serious: Yes (Life-Threatening, Hospitalization, Other)
  Sender: FDA-Public Use
  Company Number: None

PATIENT
  Age: 52 Year
  Sex: Male
  Weight: 73 kg

DRUGS (9)
  1. EMPAGLIFLOZIN [Suspect]
     Active Substance: EMPAGLIFLOZIN
     Indication: Product used for unknown indication
     Dates: start: 20220130, end: 20220206
  2. METOPROLOL TABLET   50MG / Brand name not specified [Concomitant]
     Indication: Product used for unknown indication
  3. DILTIAZEM [Concomitant]
     Active Substance: DILTIAZEM
     Indication: Product used for unknown indication
  4. PANTOPRAZOLE [Concomitant]
     Active Substance: PANTOPRAZOLE
     Indication: Product used for unknown indication
  5. CARBASALAATCALCIUM BRUISTABLET 100MG / Brand name not specified [Concomitant]
     Indication: Product used for unknown indication
  6. PARACETAMOL TABLET  500MG / Brand name not specified [Concomitant]
     Indication: Product used for unknown indication
  7. TICAGRELOR TABLET 90MG / Brand name not specified [Concomitant]
     Indication: Product used for unknown indication
  8. RAMIPRIL TABLET  2,5MG / Brand name not specified [Concomitant]
     Indication: Product used for unknown indication
  9. ROSUVASTATIN [Concomitant]
     Active Substance: ROSUVASTATIN
     Indication: Product used for unknown indication

REACTIONS (1)
  - Ketoacidosis [Recovered/Resolved]

NARRATIVE: CASE EVENT DATE: 20220206
